FAERS Safety Report 4934905-X (Version None)
Quarter: 2006Q1

REPORT INFORMATION
  Report Type: 
  Country: None (occurrence: None)
  Receive Date: 20060303
  Receipt Date: 20060303
  Transmission Date: 20060701
  Serious: Yes (Other)
  Sender: FDA-Public Use
  Company Number: None

PATIENT
  Age: 49 Year
  Sex: Male
  Weight: 94.8018 kg

DRUGS (1)
  1. ADVAIR DISKUS 100/50 [Suspect]
     Indication: ASTHMA
     Dosage: 250/50 BID INHAL
     Route: 055
     Dates: start: 20050920, end: 20060226

REACTIONS (10)
  - BLOOD PRESSURE INCREASED [None]
  - BRUXISM [None]
  - CHEST DISCOMFORT [None]
  - CHEST PAIN [None]
  - DYSPEPSIA [None]
  - DYSPNOEA [None]
  - ELECTROCARDIOGRAM CHANGE [None]
  - PAIN [None]
  - PAIN IN EXTREMITY [None]
  - TACHYCARDIA [None]
